FAERS Safety Report 6475416-2 (Version None)
Quarter: 2009Q4

REPORT INFORMATION
  Report Type: 
  Country: None (occurrence: None)
  Receive Date: 20091204
  Receipt Date: 20091124
  Transmission Date: 20100525
  Serious: Yes (Other)
  Sender: FDA-Public Use
  Company Number: GB-JNJFOC-20070202234

PATIENT
  Age: 40 Year
  Sex: Male
  Weight: 90 kg

DRUGS (4)
  1. TRAMADOL HCL [Suspect]
     Indication: POSTOPERATIVE ANALGESIA
     Route: 048
  2. LACTULOSE [Concomitant]
     Indication: HAEMORRHOID OPERATION
     Route: 048
  3. PARACETAMOL [Concomitant]
     Indication: HAEMORRHOID OPERATION
     Route: 048
  4. RANITIDINE [Concomitant]
     Indication: GASTROOESOPHAGEAL REFLUX DISEASE
     Route: 048

REACTIONS (1)
  - FACIAL PALSY [None]
